FAERS Safety Report 8609970-9 (Version None)
Quarter: 2012Q3

REPORT INFORMATION
  Report Type: 
  Country: None (occurrence: None)
  Receive Date: 20120821
  Receipt Date: 20120808
  Transmission Date: 20120928
  Serious: Yes (Other)
  Sender: FDA-Public Use
  Company Number: CZ-MYLANLABS-2012S1016671

PATIENT
  Age: 47 Year
  Sex: Male

DRUGS (1)
  1. SERTRALINE HYDROCHLORIDE [Suspect]
     Indication: DEPRESSION
     Dosage: 50MG DAILY
     Route: 065

REACTIONS (6)
  - RESTLESS LEGS SYNDROME [None]
  - MOTOR DYSFUNCTION [None]
  - SOMNOLENCE [None]
  - PRURITUS [None]
  - PERIODIC LIMB MOVEMENT DISORDER [None]
  - MOVEMENT DISORDER [None]
